FAERS Safety Report 16176664 (Version 1)
Quarter: 2019Q2

REPORT INFORMATION
  Report Type: Spontaneous
  Country: FR (occurrence: FR)
  Receive Date: 20190409
  Receipt Date: 20190409
  Transmission Date: 20190711
  Serious: Yes (Hospitalization)
  Sender: FDA-Public Use
  Company Number: FR-PFIZER INC-2019148098

PATIENT
  Age: 67 Year
  Sex: Male
  Weight: 78 kg

DRUGS (4)
  1. FINASTERIDE. [Suspect]
     Active Substance: FINASTERIDE
     Dosage: UNK
     Route: 048
  2. TERCIAN [CYAMEMAZINE TARTRATE] [Suspect]
     Active Substance: CYAMEMAZINE
     Dosage: UNK
  3. NORSET [Suspect]
     Active Substance: MIRTAZAPINE
     Dosage: UNK
     Route: 048
  4. VENLAFAXINE HCL [Suspect]
     Active Substance: VENLAFAXINE HYDROCHLORIDE
     Dosage: UNK

REACTIONS (3)
  - Altered state of consciousness [Recovered/Resolved]
  - Sedation [Recovered/Resolved]
  - Toxicity to various agents [Recovered/Resolved]

NARRATIVE: CASE EVENT DATE: 20190129
